FAERS Safety Report 9034850 (Version 1)
Quarter: 2013Q1

REPORT INFORMATION
  Report Type: Spontaneous
  Country: US (occurrence: None)
  Receive Date: 20130116
  Receipt Date: 20130116
  Transmission Date: 20140127
  Serious: Yes (Hospitalization)
  Sender: FDA-Public Use
  Company Number: None

PATIENT
  Age: 68 Year
  Sex: Male
  Weight: 81.5 kg

DRUGS (2)
  1. DOCETAXEL [Suspect]
     Indication: PROSTATE CANCER
     Dosage: 150 MG  ONCE  IV
     Route: 042
     Dates: start: 20121206, end: 20121206
  2. ASPIRIN [Suspect]
     Dosage: 81 MG  EVERY DAY  PO
     Route: 048
     Dates: start: 20090730, end: 20121220

REACTIONS (5)
  - Normochromic normocytic anaemia [None]
  - Thrombocytopenia [None]
  - Haematemesis [None]
  - Gastritis [None]
  - Bone marrow failure [None]
